FAERS Safety Report 13291659 (Version 1)
Quarter: 2017Q1

REPORT INFORMATION
  Report Type: Spontaneous
  Country: US (occurrence: US)
  Receive Date: 20170303
  Receipt Date: 20170303
  Transmission Date: 20170428
  Serious: Yes (Other)
  Sender: FDA-Public Use
  Company Number: None

PATIENT
  Age: 67 Year
  Sex: Male
  Weight: 90 kg

DRUGS (8)
  1. CYANOCOBALAMIN. [Concomitant]
     Active Substance: CYANOCOBALAMIN
  2. CODEINE [Concomitant]
     Active Substance: CODEINE
  3. VITAMIN D [Concomitant]
     Active Substance: CHOLECALCIFEROL
  4. LEDIPASVIR 90MG/SOFOSBUVIR 400MG [Suspect]
     Active Substance: LEDIPASVIR\SOFOSBUVIR
     Indication: HEPATITIS C
     Route: 048
     Dates: start: 20170205
  5. BUSPRONE [Concomitant]
  6. LISINAPRIL [Concomitant]
  7. ASPIRIN. [Concomitant]
     Active Substance: ASPIRIN
  8. GABUPENTIN [Concomitant]

REACTIONS (11)
  - Pain [None]
  - Pain of skin [None]
  - Mobility decreased [None]
  - Joint swelling [None]
  - Neck pain [None]
  - Drug effect decreased [None]
  - Emotional distress [None]
  - Arthralgia [None]
  - Musculoskeletal pain [None]
  - Skin swelling [None]
  - Pain in extremity [None]

NARRATIVE: CASE EVENT DATE: 20170205
